FAERS Safety Report 10598539 (Version 1)
Quarter: 2014Q4

REPORT INFORMATION
  Report Type: Spontaneous
  Country: US (occurrence: US)
  Receive Date: 20141121
  Receipt Date: 20141121
  Transmission Date: 20150529
  Serious: Yes (Other)
  Sender: FDA-Public Use
  Company Number: US-ROXANE LABORATORIES, INC.-2014-RO-01751RO

PATIENT
  Age: 53 Year
  Sex: Male

DRUGS (2)
  1. METHADONE [Suspect]
     Active Substance: METHADONE HYDROCHLORIDE
     Indication: BACK PAIN
     Dosage: 130 MG
     Route: 048
  2. XANAX [Concomitant]
     Active Substance: ALPRAZOLAM
     Indication: ANXIETY
     Route: 065

REACTIONS (4)
  - Chest pain [Unknown]
  - Visual impairment [Not Recovered/Not Resolved]
  - Weight increased [Unknown]
  - Blood testosterone decreased [Unknown]
